FAERS Safety Report 17593561 (Version 1)
Quarter: 2020Q1

REPORT INFORMATION
  Report Type: Spontaneous
  Country: DE (occurrence: DE)
  Receive Date: 20200327
  Receipt Date: 20200327
  Transmission Date: 20200409
  Serious: Yes (Other)
  Sender: FDA-Public Use
  Company Number: DE-MYLANLABS-2020M1032561

PATIENT
  Sex: Female
  Weight: 1.01 kg

DRUGS (2)
  1. TRASTUZUMAB. [Suspect]
     Active Substance: TRASTUZUMAB
     Indication: BREAST CANCER METASTATIC
     Dosage: 6 MG/KG, EVERY 3 WEEKS (25 CYCLES/EIGHT MORE CYCLE/ONE MORE CYCLE)
     Route: 064
  2. TRASTUZUMAB. [Suspect]
     Active Substance: TRASTUZUMAB
     Indication: METASTASES TO CENTRAL NERVOUS SYSTEM
     Dosage: 2 MILLIGRAM/KILOGRAM, QW
     Route: 064

REACTIONS (5)
  - Foetal exposure during pregnancy [Recovered/Resolved]
  - Infection [Unknown]
  - Respiratory failure [Unknown]
  - Premature baby [Unknown]
  - Necrotising colitis [Unknown]
